FAERS Safety Report 6567637-5 (Version None)
Quarter: 2010Q1

REPORT INFORMATION
  Report Type: 
  Country: None (occurrence: None)
  Receive Date: 20100202
  Receipt Date: 20100128
  Transmission Date: 20100710
  Serious: Yes (Life-Threatening)
  Sender: FDA-Public Use
  Company Number: ES-BRISTOL-MYERS SQUIBB COMPANY-14870315

PATIENT
  Age: 76 Year
  Sex: Male
  Weight: 59 kg

DRUGS (3)
  1. CETUXIMAB [Suspect]
     Indication: NON-SMALL CELL LUNG CANCER
     Dosage: RECENT INF: 20AUG09, TEMPORARILY DISCONTINUED AND RESTARTED ON 02SEP09
     Route: 042
     Dates: start: 20090519
  2. CISPLATIN FOR INJ [Suspect]
     Indication: NON-SMALL CELL LUNG CANCER
     Dosage: DAY 1 OF 21-DAY CYCLE)
     Route: 042
     Dates: start: 20090519, end: 20090813
  3. GEMCITABINE [Suspect]
     Indication: NON-SMALL CELL LUNG CANCER
     Dosage: DAYS 1 + 8 OF 21-DAY CYCLE
     Route: 042
     Dates: start: 20090519, end: 20090820

REACTIONS (1)
  - THROMBOCYTOPENIA [None]
